FAERS Safety Report 17318453 (Version 1)
Quarter: 2020Q1

REPORT INFORMATION
  Report Type: Other
  Country: DE (occurrence: DE)
  Receive Date: 20200124
  Receipt Date: 20200124
  Transmission Date: 20200409
  Serious: Yes (Other)
  Sender: FDA-Public Use
  Company Number: DE-NAVINTA LLC-000082

PATIENT
  Age: 22 Year
  Sex: Male

DRUGS (3)
  1. RIBAVIRIN. [Suspect]
     Active Substance: RIBAVIRIN
     Indication: HEPATITIS E
     Dosage: INCREASED TO A DOSE OF 200 TO 400 MG/D
  2. RIBAVIRIN. [Suspect]
     Active Substance: RIBAVIRIN
     Indication: HEPATITIS E
     Dosage: INITIATED AT A REDUCED DOSE OF 200 MG/D
  3. RIBAVIRIN. [Suspect]
     Active Substance: RIBAVIRIN
     Indication: HEPATITIS E
     Dosage: REDUCED TO 200 MG THREE TIMES PER WEEK

REACTIONS (3)
  - Anaemia [Unknown]
  - Therapy non-responder [Unknown]
  - Leukopenia [Unknown]
